FAERS Safety Report 15134175 (Version 1)
Quarter: 2018Q3

REPORT INFORMATION
  Report Type: Spontaneous
  Country: US (occurrence: US)
  Receive Date: 20180712
  Receipt Date: 20180712
  Transmission Date: 20181010
  Serious: No
  Sender: FDA-Public Use
  Company Number: US-IMPAX LABORATORIES, INC-2017-IPXL-03013

PATIENT
  Age: 78 Year
  Sex: Male

DRUGS (4)
  1. MIDODRINE HYDROCHLORIDE. [Suspect]
     Active Substance: MIDODRINE HYDROCHLORIDE
     Dosage: 10 MG, TABLET, THRICE DAILY
     Route: 065
  2. NORTHERA [Suspect]
     Active Substance: DROXIDOPA
     Dosage: 200 MG, 3 /DAY
     Route: 065
     Dates: start: 20171016
  3. NORTHERA [Suspect]
     Active Substance: DROXIDOPA
     Indication: PRODUCT USED FOR UNKNOWN INDICATION
     Dosage: 200 MG, 3 /DAY
     Route: 065
     Dates: start: 20171008, end: 20171012
  4. MIDODRINE HYDROCHLORIDE. [Suspect]
     Active Substance: MIDODRINE HYDROCHLORIDE
     Indication: PRODUCT USED FOR UNKNOWN INDICATION
     Dosage: 15 MG, TABLET, THRICE DAILY
     Route: 065

REACTIONS (2)
  - Blood pressure systolic increased [Recovering/Resolving]
  - Supine hypertension [Recovering/Resolving]

NARRATIVE: CASE EVENT DATE: 20171012
